FAERS Safety Report 21367107 (Version 1)
Quarter: 2022Q3

REPORT INFORMATION
  Report Type: Spontaneous
  Country: US (occurrence: US)
  Receive Date: 20220923
  Receipt Date: 20220923
  Transmission Date: 20221027
  Serious: No
  Sender: FDA-Public Use
  Company Number: US-SA-SAC20220915001424

PATIENT
  Sex: Female

DRUGS (1)
  1. DUPIXENT [Suspect]
     Active Substance: DUPILUMAB
     Dosage: 300MG FREQUENCY-OTHER
     Route: 058

REACTIONS (3)
  - Hypersensitivity [Recovering/Resolving]
  - Dry eye [Recovering/Resolving]
  - Sneezing [Recovering/Resolving]
